FAERS Safety Report 9706508 (Version 2)
Quarter: 2013Q4

REPORT INFORMATION
  Report Type: Spontaneous
  Country: BR (occurrence: BR)
  Receive Date: 20131125
  Receipt Date: 20131125
  Transmission Date: 20140711
  Serious: Yes (Other)
  Sender: FDA-Public Use
  Company Number: BR-AMGEN-BRACT2012075661

PATIENT
  Age: 48 Year
  Sex: Male
  Weight: 78 kg

DRUGS (5)
  1. ENBREL [Suspect]
     Indication: RHEUMATOID ARTHRITIS
     Dosage: 25 MG, TWICE WEEKLY
     Route: 065
     Dates: start: 201102
  2. ENBREL [Suspect]
     Dosage: 50 MG, ONCE WEEKLY
     Dates: start: 201108
  3. SULFASALAZINE [Concomitant]
     Dosage: 500 MG, 2X/DAY
  4. PREDSIM [Concomitant]
     Dosage: UNK UNK, UNK
  5. METHOTREXATE [Concomitant]
     Dosage: UNK

REACTIONS (6)
  - Asthenia [Unknown]
  - Cataract [Unknown]
  - Uveitis [Recovering/Resolving]
  - Nasopharyngitis [Not Recovered/Not Resolved]
  - Oropharyngeal pain [Not Recovered/Not Resolved]
  - Headache [Not Recovered/Not Resolved]
